FAERS Safety Report 7018357-4 (Version None)
Quarter: 2010Q3

REPORT INFORMATION
  Report Type: 
  Country: None (occurrence: None)
  Receive Date: 20100924
  Receipt Date: 20100901
  Transmission Date: 20110219
  Serious: Yes (Hospitalization, Other)
  Sender: FDA-Public Use
  Company Number: 2008AP002300

PATIENT
  Age: 54 Year
  Sex: Female

DRUGS (6)
  1. LITHIUM CARBONATE CAP [Suspect]
     Indication: BIPOLAR DISORDER
     Dosage: 300 MG;BID
  2. LIOTHYRONINE SODIUM [Suspect]
     Indication: THYROID CANCER
     Dosage: 37 UG;QD
  3. CARBAMAZEPINE [Concomitant]
  4. AMLODIPINE [Concomitant]
  5. CLONAZEPAM [Concomitant]
  6. ATORVASTATIN [Concomitant]

REACTIONS (23)
  - ATRIOVENTRICULAR BLOCK [None]
  - ATRIOVENTRICULAR DISSOCIATION [None]
  - BLOOD SODIUM DECREASED [None]
  - BLOOD UREA INCREASED [None]
  - CENTRAL OBESITY [None]
  - CONFUSIONAL STATE [None]
  - DYSSTASIA [None]
  - FATIGUE [None]
  - HAEMODIALYSIS [None]
  - HYPOTENSION [None]
  - LETHARGY [None]
  - MENTAL STATUS CHANGES [None]
  - MUCOUS MEMBRANE DISORDER [None]
  - NEPHROGENIC DIABETES INSIPIDUS [None]
  - OEDEMA PERIPHERAL [None]
  - RESPIRATORY FAILURE [None]
  - SINUS BRADYCARDIA [None]
  - SPEECH DISORDER [None]
  - THERAPEUTIC AGENT TOXICITY [None]
  - THYROID CANCER [None]
  - URINARY INCONTINENCE [None]
  - URINE OUTPUT DECREASED [None]
  - WITHDRAWAL SYNDROME [None]
